FAERS Safety Report 16889052 (Version 1)
Quarter: 2019Q4

REPORT INFORMATION
  Report Type: Report from Study
  Country: DE (occurrence: DE)
  Receive Date: 20191007
  Receipt Date: 20191007
  Transmission Date: 20200122
  Serious: Yes (Hospitalization)
  Sender: FDA-Public Use
  Company Number: DE-TEVA-2019-DE-1117688

PATIENT
  Age: 65 Year
  Sex: Female
  Weight: 55 kg

DRUGS (4)
  1. CARBOPLATIN. [Suspect]
     Active Substance: CARBOPLATIN
     Indication: OVARIAN CANCER
     Dosage: DAILY DOSE: 575 MG MILLGRAM(S) EVERY 3 WEEKS
     Route: 042
     Dates: start: 20131223, end: 20131223
  2. PEGFILGRASTIM [Concomitant]
     Active Substance: PEGFILGRASTIM
     Dosage: DAILY DOSE: 6 MG MILLGRAM(S) EVERY 3 WEEKS
     Route: 058
     Dates: start: 20140210, end: 20140415
  3. PACLITAXEL. [Suspect]
     Active Substance: PACLITAXEL
     Dosage: DAILY DOSE: 273 MG MILLGRAM(S) EVERY 3 WEEKS
     Route: 042
     Dates: start: 20140114, end: 20140114
  4. AVASTIN [Suspect]
     Active Substance: BEVACIZUMAB
     Indication: OVARIAN CANCER
     Dosage: DATE OF LAST DOSE PRIOR TO SAE 14/JAN/2014
     Route: 042
     Dates: start: 20131223, end: 20131223

REACTIONS (1)
  - Cystitis [Recovered/Resolved]

NARRATIVE: CASE EVENT DATE: 20140124
